FAERS Safety Report 11134386 (Version 1)
Quarter: 2015Q2

REPORT INFORMATION
  Report Type: Spontaneous
  Country: US (occurrence: US)
  Receive Date: 20150525
  Receipt Date: 20150525
  Transmission Date: 20150821
  Serious: No
  Sender: FDA-Public Use
  Company Number: US-ASTRAZENECA-2015SE43896

PATIENT
  Age: 24801 Day
  Sex: Male

DRUGS (1)
  1. BYDUREON [Suspect]
     Active Substance: EXENATIDE
     Route: 058
     Dates: start: 20150510

REACTIONS (2)
  - Injection site pain [Unknown]
  - Underdose [Unknown]

NARRATIVE: CASE EVENT DATE: 20150510
